FAERS Safety Report 11611332 (Version 1)
Quarter: 2015Q4

REPORT INFORMATION
  Report Type: Report from Study
  Country: US (occurrence: US)
  Receive Date: 20151008
  Receipt Date: 20151008
  Transmission Date: 20160304
  Serious: Yes (Other)
  Sender: FDA-Public Use
  Company Number: US-AMGEN-USASL2015103112

PATIENT
  Age: 31 Year
  Sex: Male

DRUGS (1)
  1. ENBREL [Suspect]
     Active Substance: ETANERCEPT
     Indication: ANKYLOSING SPONDYLITIS
     Dosage: 50 MG, QWK
     Route: 065
     Dates: start: 20150508, end: 2015

REACTIONS (10)
  - Arthritis infective [Unknown]
  - Lymphadenopathy [Unknown]
  - Lyme disease [Unknown]
  - Pyrexia [Unknown]
  - Skin fissures [Unknown]
  - Mobility decreased [Unknown]
  - Disturbance in attention [Unknown]
  - Migraine [Unknown]
  - Skin infection [Unknown]
  - Peripheral swelling [Unknown]

NARRATIVE: CASE EVENT DATE: 2015
